FAERS Safety Report 15859375 (Version 4)
Quarter: 2019Q4

REPORT INFORMATION
  Report Type: Spontaneous
  Country: US (occurrence: US)
  Receive Date: 20190123
  Receipt Date: 20191209
  Transmission Date: 20200122
  Serious: Yes (Other)
  Sender: FDA-Public Use
  Company Number: US-SA-2019SA018561

PATIENT
  Age: 43 Year
  Sex: Female

DRUGS (1)
  1. KEVZARA [Suspect]
     Active Substance: SARILUMAB
     Indication: RHEUMATOID ARTHRITIS
     Dosage: 200 MG, QOW
     Route: 058
     Dates: start: 20180712

REACTIONS (4)
  - Rheumatoid arthritis [Recovered/Resolved]
  - Ill-defined disorder [Unknown]
  - Product dose omission [Unknown]
  - Nasal congestion [Unknown]
